FAERS Safety Report 24630468 (Version 1)
Quarter: 2024Q4

REPORT INFORMATION
  Report Type: Spontaneous
  Country: US (occurrence: US)
  Receive Date: 20241118
  Receipt Date: 20241118
  Transmission Date: 20250115
  Serious: Yes (Hospitalization, Other)
  Sender: ALEXION PHARMACEUTICALS
  Company Number: US-AstraZeneca-CH-00731001A

PATIENT

DRUGS (8)
  1. CAPIVASERTIB [Suspect]
     Active Substance: CAPIVASERTIB
     Dosage: UNK
  2. CAPIVASERTIB [Suspect]
     Active Substance: CAPIVASERTIB
     Dosage: UNK
  3. CAPIVASERTIB [Suspect]
     Active Substance: CAPIVASERTIB
     Dosage: UNK
  4. CAPIVASERTIB [Suspect]
     Active Substance: CAPIVASERTIB
     Dosage: UNK
  5. FASLODEX [Suspect]
     Active Substance: FULVESTRANT
     Dosage: UNK
  6. FASLODEX [Suspect]
     Active Substance: FULVESTRANT
     Dosage: UNK
  7. FASLODEX [Suspect]
     Active Substance: FULVESTRANT
     Dosage: UNK
  8. FASLODEX [Suspect]
     Active Substance: FULVESTRANT
     Dosage: UNK

REACTIONS (10)
  - Urinary tract infection [Unknown]
  - Cystitis [Unknown]
  - Blood glucose increased [Unknown]
  - Blood glucose fluctuation [Unknown]
  - Pruritus [Unknown]
  - Rash [Unknown]
  - Weight decreased [Unknown]
  - Onychoclasis [Unknown]
  - Nail disorder [Unknown]
  - Onychalgia [Unknown]
